FAERS Safety Report 18267037 (Version 2)
Quarter: 2021Q1

REPORT INFORMATION
  Report Type: Spontaneous
  Country: US (occurrence: US)
  Receive Date: 20200915
  Receipt Date: 20210118
  Transmission Date: 20210419
  Serious: No
  Sender: FDA-Public Use
  Company Number: US-SHIRE-US202029985

PATIENT
  Sex: Female
  Weight: 59 kg

DRUGS (6)
  1. CLONAZEPAM. [Concomitant]
     Active Substance: CLONAZEPAM
     Indication: SEDATIVE THERAPY
     Dosage: 0.5 MILLIGRAM
  2. MOTEGRITY [Suspect]
     Active Substance: PRUCALOPRIDE SUCCINATE
     Indication: CONSTIPATION
     Dosage: 2 MILLIGRAM
     Route: 065
  3. MOTEGRITY [Suspect]
     Active Substance: PRUCALOPRIDE SUCCINATE
     Dosage: 50 MICROGRAM
     Route: 065
  4. CITRUCEL [Concomitant]
     Active Substance: METHYLCELLULOSE (4000 MPA.S)
  5. TYLENOL [Concomitant]
     Active Substance: ACETAMINOPHEN
  6. LEVOTHYROXINE. [Concomitant]
     Active Substance: LEVOTHYROXINE
     Indication: HYPOTHYROIDISM
     Dosage: 75 MICROGRAM

REACTIONS (13)
  - Gait disturbance [Unknown]
  - Gastrointestinal bacterial overgrowth [Unknown]
  - Pollakiuria [Unknown]
  - Confusional state [Unknown]
  - Stress [Unknown]
  - Diplopia [Unknown]
  - Anxiety [Unknown]
  - Condition aggravated [Unknown]
  - Nausea [Unknown]
  - Drug ineffective [Unknown]
  - Faeces soft [Unknown]
  - Anorectal discomfort [Unknown]
  - Flatulence [Unknown]
